FAERS Safety Report 9812678 (Version 1)
Quarter: 2014Q1

REPORT INFORMATION
  Report Type: Spontaneous
  Country: US (occurrence: US)
  Receive Date: 20140113
  Receipt Date: 20140113
  Transmission Date: 20141002
  Serious: Yes (Death)
  Sender: FDA-Public Use
  Company Number: US-JNJFOC-20140103958

PATIENT
  Age: 25 Year
  Sex: Male

DRUGS (1)
  1. FENTANYL TRANSDERMAL SYSTEM [Suspect]
     Indication: PRODUCT USED FOR UNKNOWN INDICATION
     Route: 051

REACTIONS (3)
  - Intentional drug misuse [Fatal]
  - Toxicity to various agents [Fatal]
  - Incorrect route of drug administration [Fatal]
